FAERS Safety Report 6728054-8 (Version None)
Quarter: 2010Q2

REPORT INFORMATION
  Report Type: 
  Country: None (occurrence: None)
  Receive Date: 20100512
  Receipt Date: 20100315
  Transmission Date: 20101027
  Serious: Yes (Hospitalization)
  Sender: FDA-Public Use
  Company Number: 1000011205

PATIENT
  Age: 69 Year
  Sex: Female

DRUGS (7)
  1. SAVELLA [Suspect]
     Indication: FIBROMYALGIA
     Dosage: 12.5 MG (12.5 MG,1 IN 1 D), ORAL; 25 MG (12.5 MG,2 IN 1 D),ORAL; 50 MG(25 MG,2 IN 1 D), ORAL
     Route: 048
     Dates: start: 20091201, end: 20091201
  2. SAVELLA [Suspect]
     Indication: FIBROMYALGIA
     Dosage: 12.5 MG (12.5 MG,1 IN 1 D), ORAL; 25 MG (12.5 MG,2 IN 1 D),ORAL; 50 MG(25 MG,2 IN 1 D), ORAL
     Route: 048
     Dates: start: 20091201, end: 20091201
  3. SAVELLA [Suspect]
     Indication: FIBROMYALGIA
     Dosage: 12.5 MG (12.5 MG,1 IN 1 D), ORAL; 25 MG (12.5 MG,2 IN 1 D),ORAL; 50 MG(25 MG,2 IN 1 D), ORAL
     Route: 048
     Dates: start: 20091201, end: 20091201
  4. SAVELLA [Suspect]
     Indication: FIBROMYALGIA
     Dosage: 100 MG (50MG,2 IN 1 D),ORAL
     Route: 048
     Dates: start: 20091201, end: 20100105
  5. SYNTHROID [Concomitant]
  6. SOMA [Concomitant]
  7. VICODIN [Concomitant]

REACTIONS (5)
  - DECREASED APPETITE [None]
  - DIZZINESS [None]
  - FLUSHING [None]
  - NAUSEA [None]
  - TENSION HEADACHE [None]
